FAERS Safety Report 4939593-4 (Version None)
Quarter: 2006Q1

REPORT INFORMATION
  Report Type: 
  Country: None (occurrence: None)
  Receive Date: 20060307
  Receipt Date: 20060227
  Transmission Date: 20060701
  Serious: Yes (Hospitalization, Other)
  Sender: FDA-Public Use
  Company Number: 2006028763

PATIENT
  Sex: Male
  Weight: 81.6475 kg

DRUGS (6)
  1. LIPITOR [Suspect]
     Indication: BLOOD CHOLESTEROL INCREASED
     Dosage: 20 MG (20 MG, DAILY), ORAL
     Route: 048
  2. METOPROLOL (METOPROLOL) [Concomitant]
  3. ALTACE [Concomitant]
  4. ASPIRIN [Concomitant]
  5. VITAMIN C (VITAMIN C) [Concomitant]
  6. ALDACTONE [Concomitant]

REACTIONS (4)
  - CEREBROVASCULAR ACCIDENT [None]
  - GAMMA-GLUTAMYLTRANSFERASE INCREASED [None]
  - MEAN CELL VOLUME INCREASED [None]
  - VISUAL FIELD DEFECT [None]
